FAERS Safety Report 6571642-2 (Version None)
Quarter: 2010Q1

REPORT INFORMATION
  Report Type: 
  Country: None (occurrence: None)
  Receive Date: 20100205
  Receipt Date: 20100126
  Transmission Date: 20100710
  Serious: Yes (Other)
  Sender: FDA-Public Use
  Company Number: PHHY2010JP04507

PATIENT

DRUGS (1)
  1. TEGRETOL [Suspect]
     Route: 064

REACTIONS (3)
  - DEVICE DISLOCATION [None]
  - DRUG EXPOSURE DURING PREGNANCY [None]
  - WITHDRAWAL SYNDROME [None]
